FAERS Safety Report 23847489 (Version 4)
Quarter: 2024Q3

REPORT INFORMATION
  Report Type: Spontaneous
  Country: US (occurrence: US)
  Receive Date: 20240513
  Receipt Date: 20240828
  Transmission Date: 20241017
  Serious: No
  Sender: JOHNSON AND JOHNSON
  Company Number: US-JNJFOC-20240519291

PATIENT
  Age: 41 Year
  Sex: Female

DRUGS (5)
  1. TREMFYA [Suspect]
     Active Substance: GUSELKUMAB
     Indication: Psoriasis
     Route: 058
     Dates: start: 20230321
  2. .ALPHA.-TOCOPHEROL [Concomitant]
     Active Substance: .ALPHA.-TOCOPHEROL
  3. VITAMIN C [Concomitant]
     Active Substance: ASCORBIC ACID
  4. TRAZODONE HYDROCHLORIDE [Concomitant]
     Active Substance: TRAZODONE HYDROCHLORIDE
  5. EFFEXOR [Concomitant]
     Active Substance: VENLAFAXINE HYDROCHLORIDE

REACTIONS (11)
  - Hypersensitivity [Unknown]
  - Urticaria [Unknown]
  - Tinea pedis [Unknown]
  - Psoriasis [Unknown]
  - Depression [Unknown]
  - Infection [Unknown]
  - Psoriasis [Unknown]
  - Discomfort [Unknown]
  - Dry skin [Unknown]
  - Pruritus [Unknown]
  - Fungal infection [Unknown]
